FAERS Safety Report 8510881-8 (Version None)
Quarter: 2012Q3

REPORT INFORMATION
  Report Type: 
  Country: None (occurrence: None)
  Receive Date: 20120709
  Receipt Date: 20120709
  Transmission Date: 20120928
  Serious: Yes (Hospitalization)
  Sender: FDA-Public Use
  Company Number: None

PATIENT
  Sex: Female
  Weight: 95.91 kg

DRUGS (1)
  1. CARBOPLATIN [Suspect]
     Dosage: 509 MG

REACTIONS (15)
  - BLOOD SODIUM DECREASED [None]
  - URINARY TRACT INFECTION [None]
  - ABDOMINAL PAIN [None]
  - BLOOD UREA INCREASED [None]
  - PLATELET COUNT DECREASED [None]
  - HAEMATOCRIT DECREASED [None]
  - BLOOD ALBUMIN DECREASED [None]
  - ASTHENIA [None]
  - BLOOD GLUCOSE INCREASED [None]
  - NAUSEA [None]
  - HYPOPHAGIA [None]
  - MYOCARDIAL INFARCTION [None]
  - ASPARTATE AMINOTRANSFERASE INCREASED [None]
  - NEUTROPHIL PERCENTAGE INCREASED [None]
  - HAEMOGLOBIN DECREASED [None]
